FAERS Safety Report 12482883 (Version 2)
Quarter: 2016Q3

REPORT INFORMATION
  Report Type: Spontaneous
  Country: US (occurrence: US)
  Receive Date: 20160620
  Receipt Date: 20160715
  Transmission Date: 20161109
  Serious: No
  Sender: FDA-Public Use
  Company Number: US-CELGENEUS-USA-2016063903

PATIENT
  Age: 76 Year
  Sex: Male
  Weight: 69.46 kg

DRUGS (1)
  1. REVLIMID [Suspect]
     Active Substance: LENALIDOMIDE
     Indication: PLASMA CELL MYELOMA
     Dosage: 25 MILLIGRAM
     Route: 048
     Dates: start: 20150227

REACTIONS (2)
  - Fatigue [Unknown]
  - Dental caries [Not Recovered/Not Resolved]

NARRATIVE: CASE EVENT DATE: 201511
